FAERS Safety Report 4589989-8 (Version None)
Quarter: 2005Q1

REPORT INFORMATION
  Report Type: 
  Country: None (occurrence: None)
  Receive Date: 20050125
  Receipt Date: 20040902
  Transmission Date: 20050727
  Serious: No
  Sender: FDA-Public Use
  Company Number: USA040772626

PATIENT
  Age: 75 Year
  Sex: Female
  Weight: 48 kg

DRUGS (5)
  1. FORTEO [Suspect]
     Indication: OSTEOPOROSIS
     Dosage: 20 UG/1 DAY
     Dates: start: 20040603
  2. PERCOCET [Concomitant]
  3. CALCIUM GLUCONATE [Concomitant]
  4. VITAMIN D [Concomitant]
  5. COUMADIN [Concomitant]

REACTIONS (14)
  - BONE DENSITY DECREASED [None]
  - BREAST INFECTION [None]
  - CONTUSION [None]
  - CYSTITIS [None]
  - DYSPNOEA [None]
  - INJECTION SITE ERYTHEMA [None]
  - INJECTION SITE HAEMORRHAGE [None]
  - NERVOUSNESS [None]
  - PERIORBITAL OEDEMA [None]
  - SWELLING FACE [None]
  - URINARY TRACT INFECTION [None]
  - URINE CALCIUM DECREASED [None]
  - VOMITING [None]
  - WEIGHT DECREASED [None]
